FAERS Safety Report 5090722-4 (Version None)
Quarter: 2006Q3

REPORT INFORMATION
  Report Type: 
  Country: None (occurrence: None)
  Receive Date: 20060823
  Receipt Date: 20060810
  Transmission Date: 20061208
  Serious: Yes (Hospitalization)
  Sender: FDA-Public Use
  Company Number: 228116

PATIENT
  Age: 61 Year
  Sex: Female

DRUGS (4)
  1. RAPTIVA [Suspect]
     Indication: PSORIASIS
     Dosage: 75 MG, 1/WEEK, SUBCUTANEOUS
     Route: 058
     Dates: start: 20060415
  2. PAROXETINE HYDROCHLORIDE [Concomitant]
  3. FENOFIBRATE [Concomitant]
  4. VASTAREL (TRIMETAZIDINE) [Concomitant]

REACTIONS (4)
  - CONDITION AGGRAVATED [None]
  - DERMATITIS EXFOLIATIVE [None]
  - PSORIASIS [None]
  - PYREXIA [None]
